FAERS Safety Report 7212428-5 (Version None)
Quarter: 2010Q4

REPORT INFORMATION
  Report Type: 
  Country: None (occurrence: None)
  Receive Date: 20101230
  Receipt Date: 20101214
  Transmission Date: 20110411
  Serious: Yes (Other)
  Sender: FDA-Public Use
  Company Number: FKO201000576

PATIENT
  Age: 41 Year
  Sex: Female

DRUGS (2)
  1. MESNA [Suspect]
     Indication: CYSTITIS HAEMORRHAGIC
  2. CYCLOPHOSPHAMIDE [Concomitant]

REACTIONS (3)
  - DRUG ERUPTION [None]
  - PIGMENTATION DISORDER [None]
  - PRURITUS [None]
